FAERS Safety Report 13094813 (Version 2)
Quarter: 2017Q1

REPORT INFORMATION
  Report Type: Spontaneous
  Country: US (occurrence: US)
  Receive Date: 20170106
  Receipt Date: 20170111
  Transmission Date: 20170428
  Serious: Yes (Other)
  Sender: FDA-Public Use
  Company Number: US-ELI_LILLY_AND_COMPANY-US201608012887

PATIENT
  Age: 48 Year

DRUGS (2)
  1. CYMBALTA [Suspect]
     Active Substance: DULOXETINE HYDROCHLORIDE
     Indication: PRODUCT USED FOR UNKNOWN INDICATION
     Dosage: UNK, UNKNOWN
     Route: 065
  2. CYMBALTA [Suspect]
     Active Substance: DULOXETINE HYDROCHLORIDE
     Dosage: 60 MG, EACH MORNING
     Route: 048
     Dates: start: 20150210

REACTIONS (14)
  - Nausea [Unknown]
  - Anxiety [Unknown]
  - Suicidal ideation [Unknown]
  - Irritability [Unknown]
  - Suicide attempt [Unknown]
  - Affect lability [Unknown]
  - Drug withdrawal syndrome [Unknown]
  - Paraesthesia [Unknown]
  - Fatigue [Unknown]
  - Headache [Unknown]
  - Confusional state [Unknown]
  - Dizziness [Unknown]
  - Dysphoria [Unknown]
  - Agitation [Unknown]

NARRATIVE: CASE EVENT DATE: 20151117
